FAERS Safety Report 6595912-7 (Version None)
Quarter: 2010Q1

REPORT INFORMATION
  Report Type: 
  Country: None (occurrence: None)
  Receive Date: 20100219
  Receipt Date: 20100219
  Transmission Date: 20100710
  Serious: Yes (Other)
  Sender: FDA-Public Use
  Company Number: None

PATIENT
  Sex: Male
  Weight: 63.6 kg

DRUGS (1)
  1. OXALILPATIN [Suspect]
     Indication: PANCREATIC CARCINOMA
     Dosage: 100MG IV
     Route: 042
     Dates: start: 20100120

REACTIONS (3)
  - CHILLS [None]
  - FLUSHING [None]
  - HYPERHIDROSIS [None]
